FAERS Safety Report 6740536-1 (Version None)
Quarter: 2010Q2

REPORT INFORMATION
  Report Type: 
  Country: None (occurrence: None)
  Receive Date: 20100525
  Receipt Date: 20100519
  Transmission Date: 20101027
  Serious: Yes (Death)
  Sender: FDA-Public Use
  Company Number: EC-ROCHE-703887

PATIENT
  Sex: Female
  Weight: 58.1 kg

DRUGS (5)
  1. XELODA [Suspect]
     Indication: COLORECTAL CANCER
     Dosage: FREQUENCY: DAILY FOR 14 DAYS EVERY THREE WEEKS
     Route: 048
     Dates: start: 20081113, end: 20100407
  2. AVASTIN [Suspect]
     Indication: COLORECTAL CANCER
     Route: 042
     Dates: start: 20081113, end: 20100407
  3. OXALIPLATIN [Concomitant]
     Indication: COLORECTAL CANCER
     Route: 042
     Dates: start: 20081101, end: 20100407
  4. FLUOROURACIL [Concomitant]
     Indication: COLORECTAL CANCER
     Dosage: DRUG: 5-FLU, FREQUENCY: DAILY FOR 5 DAYS EVERY 28 DAYS
     Route: 042
     Dates: start: 20081101, end: 20100407
  5. LEUCOVORIN CALCIUM [Concomitant]
     Indication: COLORECTAL CANCER
     Dosage: FREQUENCY: DAILY FOR 5 DAYS EVERY 28 DAYS
     Route: 042
     Dates: start: 20081101, end: 20100407

REACTIONS (1)
  - SUBARACHNOID HAEMORRHAGE [None]
